FAERS Safety Report 6858352-9 (Version None)
Quarter: 2010Q3

REPORT INFORMATION
  Report Type: 
  Country: None (occurrence: None)
  Receive Date: 20100719
  Receipt Date: 20080410
  Transmission Date: 20110219
  Serious: Yes (Other)
  Sender: FDA-Public Use
  Company Number: US-PFIZER INC-2008012075

PATIENT
  Sex: Female
  Weight: 98.4 kg

DRUGS (8)
  1. CHANTIX [Suspect]
     Indication: SMOKING CESSATION THERAPY
     Route: 048
     Dates: start: 20071201, end: 20071201
  2. CHANTIX [Suspect]
     Indication: TOBACCO USER
  3. PREVACID [Concomitant]
  4. FLEXERIL [Concomitant]
  5. CYMBALTA [Concomitant]
  6. CALCIUM [Concomitant]
  7. VITAMIN D [Concomitant]
  8. CARAFATE [Concomitant]

REACTIONS (9)
  - ALANINE AMINOTRANSFERASE INCREASED [None]
  - ANXIETY [None]
  - ARTHRALGIA [None]
  - CHEST PAIN [None]
  - DYSPNOEA [None]
  - MYALGIA [None]
  - OEDEMA [None]
  - PAIN [None]
  - WEIGHT INCREASED [None]
